FAERS Safety Report 9729301 (Version 1)
Quarter: 2013Q4

REPORT INFORMATION
  Report Type: Spontaneous
  Country: US (occurrence: US)
  Receive Date: 20131204
  Receipt Date: 20131204
  Transmission Date: 20140711
  Serious: Yes (Hospitalization)
  Sender: FDA-Public Use
  Company Number: US-BAYER-2013-147482

PATIENT
  Age: 37 Year
  Sex: Female
  Weight: 79.82 kg

DRUGS (4)
  1. YAZ [Suspect]
  2. YASMIN [Suspect]
  3. LITHIUM [Concomitant]
     Indication: MOOD SWINGS
     Dosage: 300 MG, UNK
  4. TYLENOL #3 [Concomitant]

REACTIONS (1)
  - Deep vein thrombosis [Recovered/Resolved]
